FAERS Safety Report 17684431 (Version 1)
Quarter: 2020Q2

REPORT INFORMATION
  Report Type: Spontaneous
  Country: US (occurrence: US)
  Receive Date: 20200417
  Receipt Date: 20200417
  Transmission Date: 20200714
  Serious: No
  Sender: FDA-Public Use
  Company Number: None

PATIENT
  Age: 68 Year
  Sex: Male

DRUGS (1)
  1. ABIRATERONE 250MG TAB [Suspect]
     Active Substance: ABIRATERONE
     Route: 048
     Dates: start: 20191126

REACTIONS (7)
  - Fatigue [None]
  - Nausea [None]
  - Muscle spasms [None]
  - Anxiety [None]
  - Off label use [None]
  - Depression [None]
  - Hypogonadism [None]

NARRATIVE: CASE EVENT DATE: 20200117
